FAERS Safety Report 18985558 (Version 5)
Quarter: 2021Q2

REPORT INFORMATION
  Report Type: Report from Study
  Country: ES (occurrence: ES)
  Receive Date: 20210309
  Receipt Date: 20210421
  Transmission Date: 20210717
  Serious: Yes (Hospitalization)
  Sender: FDA-Public Use
  Company Number: ES-ROCHE-2779802

PATIENT
  Age: 68 Year
  Sex: Female

DRUGS (5)
  1. TRASTUZUMAB. [Suspect]
     Active Substance: TRASTUZUMAB
     Indication: HER2 POSITIVE BREAST CANCER
     Dosage: ON DAY 1 AT THE DOSE OF 8 MG/KG LOADING DOSE I.V., THEN 6 MG/KG?ON 22/JAN/2021, SHE RECEIVED LAST DO
     Route: 042
     Dates: start: 20201209
  2. PERTUZUMAB. [Suspect]
     Active Substance: PERTUZUMAB
     Indication: HER2 POSITIVE BREAST CANCER
     Dosage: DAY 1 AT THE DOSE OF 840 MG LOADING DOSE I.V., THEN 420 MG?ON 22/JAN/2021, SHE RECEIVED LAST DOSE OF
     Route: 042
     Dates: start: 20201209
  3. CARBOPLATIN. [Suspect]
     Active Substance: CARBOPLATIN
     Indication: HER2 POSITIVE BREAST CANCER
     Dosage: AUC 2?ON 29/JAN/2021, SHE RECEIVED LAST DOSE OF CARBOPLATIN (251.36 MG) PRIOR TO ONSET OF SERIOUS AD
     Route: 042
     Dates: start: 20201209, end: 20210129
  4. ATEZOLIZUMAB. [Suspect]
     Active Substance: ATEZOLIZUMAB
     Indication: HER2 POSITIVE BREAST CANCER
     Dosage: ON 22/JAN/2021, SHE RECEIVED LAST DOSE OF ATEZOLIZUMAB (1200 MG) PRIOR TO ONSET OF SERIOUS ADVERSE E
     Route: 041
     Dates: start: 20200924
  5. PACLITAXEL. [Suspect]
     Active Substance: PACLITAXEL
     Indication: HER2 POSITIVE BREAST CANCER
     Dosage: ON 29/JAN/2021, SHE RECEIVED LAST DOSE OF PACLITAXEL (172 MG) PRIOR TO ONSET OF SERIOUS ADVERSE EVEN
     Route: 042
     Dates: start: 20201209, end: 20210129

REACTIONS (1)
  - Acute kidney injury [Recovered/Resolved with Sequelae]

NARRATIVE: CASE EVENT DATE: 20210221
